FAERS Safety Report 4977830-0 (Version None)
Quarter: 2006Q1

REPORT INFORMATION
  Report Type: 
  Country: None (occurrence: None)
  Receive Date: 20060215
  Receipt Date: 20041217
  Transmission Date: 20060701
  Serious: No
  Sender: FDA-Public Use
  Company Number: MC200400910

PATIENT
  Age: 42 Year
  Sex: Male

DRUGS (2)
  1. ANGIOMAX [Suspect]
     Indication: PERCUTANEOUS CORONARY INTERVENTION
     Dosage: INTRAVENOUS
     Route: 042
     Dates: start: 20041201, end: 20041201
  2. ANGIOMAX [Suspect]
     Indication: STENT PLACEMENT
     Dosage: INTRAVENOUS
     Route: 042
     Dates: start: 20041201, end: 20041201

REACTIONS (1)
  - THROMBOSIS [None]
